FAERS Safety Report 16714764 (Version 3)
Quarter: 2020Q3

REPORT INFORMATION
  Report Type: Other
  Country: KR (occurrence: KR)
  Receive Date: 20190819
  Receipt Date: 20200806
  Transmission Date: 20201104
  Serious: Yes (Other)
  Sender: FDA-Public Use
  Company Number: KR-ROCHE-2322229

PATIENT
  Age: 50 Year
  Sex: Male

DRUGS (9)
  1. PARAMACET [Concomitant]
     Active Substance: ACETAMINOPHEN\TRAMADOL
     Indication: CHEST PAIN
     Route: 048
     Dates: start: 20190124
  2. MAGMIL [Concomitant]
     Active Substance: MAGNESIUM HYDROXIDE
     Route: 048
     Dates: start: 20190214
  3. ULTRACET ER SEMI [Concomitant]
     Indication: CHEST PAIN
     Route: 048
     Dates: start: 20190709
  4. VIMOVO [Concomitant]
     Active Substance: ESOMEPRAZOLE MAGNESIUM\NAPROXEN
     Route: 048
     Dates: start: 20190124
  5. GASMOTIN [Concomitant]
     Active Substance: MOSAPRIDE CITRATE
     Indication: DYSPEPSIA
     Route: 048
     Dates: start: 20190214
  6. CURAN [Concomitant]
     Active Substance: RANITIDINE HYDROCHLORIDE
     Route: 048
     Dates: start: 20190531
  7. TACOPEN [Concomitant]
     Indication: CHEST PAIN
     Route: 048
     Dates: start: 20190709
  8. SYNATURA [Concomitant]
     Route: 048
     Dates: start: 20190314
  9. ALECTINIB. [Suspect]
     Active Substance: ALECTINIB
     Indication: NON-SMALL CELL LUNG CANCER METASTATIC
     Route: 048
     Dates: start: 20190115, end: 20190719

REACTIONS (7)
  - Myalgia [Recovered/Resolved]
  - Alopecia [Not Recovered/Not Resolved]
  - Headache [Not Recovered/Not Resolved]
  - Urinary retention [Not Recovered/Not Resolved]
  - Atrial fibrillation [Not Recovered/Not Resolved]
  - Dyspepsia [Not Recovered/Not Resolved]
  - Back pain [Not Recovered/Not Resolved]

NARRATIVE: CASE EVENT DATE: 20190124
